FAERS Safety Report 6670962-0 (Version None)
Quarter: 2010Q2

REPORT INFORMATION
  Report Type: 
  Country: None (occurrence: None)
  Receive Date: 20100407
  Receipt Date: 20100402
  Transmission Date: 20101027
  Serious: Yes (Hospitalization)
  Sender: FDA-Public Use
  Company Number: FR-WYE-G05884610

PATIENT
  Age: 8 Year
  Sex: Male

DRUGS (4)
  1. IBUPROFEN (ADVIL) [Suspect]
     Indication: EAR INFECTION
     Dosage: UNKNOWN
     Route: 048
     Dates: start: 20090221, end: 20090223
  2. CEFPODOXIME PROXETIL [Concomitant]
     Indication: EAR INFECTION
     Dosage: UNKNOWN
     Route: 048
     Dates: start: 20090221, end: 20090222
  3. NORMACOL [Concomitant]
     Indication: CONSTIPATION
     Dosage: UNKNOWN
     Route: 048
     Dates: start: 20100221
  4. NIFLURIL [Suspect]
     Indication: EAR INFECTION
     Dosage: UNKNOWN
     Route: 048
     Dates: start: 20090217, end: 20090223

REACTIONS (6)
  - ABDOMINAL PAIN [None]
  - CONDITION AGGRAVATED [None]
  - CONSTIPATION [None]
  - PROTEIN URINE PRESENT [None]
  - RENAL FAILURE ACUTE [None]
  - VOMITING [None]
